FAERS Safety Report 6028959-X (Version None)
Quarter: 2008Q4

REPORT INFORMATION
  Report Type: 
  Country: None (occurrence: None)
  Receive Date: 20081231
  Receipt Date: 20081216
  Transmission Date: 20090506
  Serious: Yes (Other)
  Sender: FDA-Public Use
  Company Number: 2008AL012528

PATIENT
  Age: 52 Year
  Sex: Male

DRUGS (6)
  1. DIAZEPAM TABLETS USP, 10 [Suspect]
     Indication: DEPENDENT PERSONALITY DISORDER
     Dosage: 10 MG;TID;PO
     Route: 048
     Dates: start: 20020501
  2. METHADONE HCL [Concomitant]
  3. ZISPIN [Concomitant]
  4. RAPAMUNE [Concomitant]
  5. RANITIDINE [Concomitant]
  6. ACETYLSALICYLIC ACID SRT [Concomitant]

REACTIONS (4)
  - DRUG WITHDRAWAL SYNDROME [None]
  - MALAISE [None]
  - MUSCLE SPASMS [None]
  - MUSCLE TWITCHING [None]
